FAERS Safety Report 4489485-2 (Version None)
Quarter: 2004Q4

REPORT INFORMATION
  Report Type: 
  Country: None (occurrence: None)
  Receive Date: 20041026
  Receipt Date: 20041012
  Transmission Date: 20050328
  Serious: Yes (Other)
  Sender: FDA-Public Use
  Company Number: 2004238360TH

PATIENT
  Age: 45 Year
  Sex: Female

DRUGS (3)
  1. BEXTRA [Suspect]
     Indication: OSTEOARTHRITIS
     Dosage: ORAL
     Route: 048
  2. PARAFON FORTE [Concomitant]
  3. PONSTEL [Concomitant]

REACTIONS (6)
  - CHILLS [None]
  - DRUG HYPERSENSITIVITY [None]
  - DRY SKIN [None]
  - MYALGIA [None]
  - PYREXIA [None]
  - STEVENS-JOHNSON SYNDROME [None]
